FAERS Safety Report 5160603-6 (Version None)
Quarter: 2006Q4

REPORT INFORMATION
  Report Type: 
  Country: None (occurrence: None)
  Receive Date: 20061121
  Receipt Date: 20061108
  Transmission Date: 20070319
  Serious: Yes (Hospitalization)
  Sender: FDA-Public Use
  Company Number: 2006099462

PATIENT
  Age: 58 Year
  Sex: Female
  Weight: 70.3075 kg

DRUGS (4)
  1. ZYVOX [Suspect]
     Indication: BACTERIAL INFECTION
     Dosage: 1200 MG (600 MG, 2 IN 1 D)
     Dates: start: 20060417
  2. PROZAC [Concomitant]
  3. RISPERDAL [Concomitant]
  4. UNKNOWN ANTI FUNGAL (ALL OTHER THERAPEUTIC PRODUCTS) [Concomitant]

REACTIONS (7)
  - ASTHENIA [None]
  - FATIGUE [None]
  - FEELING ABNORMAL [None]
  - INSOMNIA [None]
  - LOCALISED INFECTION [None]
  - NAUSEA [None]
  - VOMITING [None]
